FAERS Safety Report 19456966 (Version 1)
Quarter: 2021Q2

REPORT INFORMATION
  Report Type: Report from Study
  Country: FR (occurrence: FR)
  Receive Date: 20210624
  Receipt Date: 20210624
  Transmission Date: 20210717
  Serious: Yes (Other)
  Sender: FDA-Public Use
  Company Number: FR-ROCHE-2492598

PATIENT
  Age: 31 Year
  Sex: Female

DRUGS (7)
  1. ATEZOLIZUMAB. [Suspect]
     Active Substance: ATEZOLIZUMAB
     Route: 041
     Dates: start: 20200107
  2. NEOMERCAZOLE [Concomitant]
     Active Substance: CARBIMAZOLE
  3. ATEZOLIZUMAB. [Suspect]
     Active Substance: ATEZOLIZUMAB
     Indication: CERVIX CARCINOMA
     Dosage: DATE OF MOST RECENT CUMULATIVE DOSE 3600 MG BEFORE EVENT ONSET 07/NOV/2019.?LAST CYCLE OF TREATMENT
     Route: 041
     Dates: start: 20190913, end: 20191219
  4. PROPRANOLOL [Concomitant]
     Active Substance: PROPRANOLOL HYDROCHLORIDE
  5. BISOPROLOL [Concomitant]
     Active Substance: BISOPROLOL
  6. CISPLATINE [Suspect]
     Active Substance: CISPLATIN
     Indication: CERVIX CARCINOMA
     Dosage: LAST CYCLE OF TREATMENT (C5)
     Route: 042
     Dates: start: 20190918, end: 20191017
  7. BISOPROLOL [Concomitant]
     Active Substance: BISOPROLOL

REACTIONS (2)
  - Hyperthyroidism [Recovered/Resolved with Sequelae]
  - Hypothyroidism [Recovered/Resolved]

NARRATIVE: CASE EVENT DATE: 20191126
